FAERS Safety Report 13091378 (Version 1)
Quarter: 2017Q1

REPORT INFORMATION
  Report Type: Spontaneous
  Country: GB (occurrence: GB)
  Receive Date: 20170106
  Receipt Date: 20170106
  Transmission Date: 20170428
  Serious: Yes (Other)
  Sender: FDA-Public Use
  Company Number: GB-IPSEN BIOPHARMACEUTICALS, INC.-2016-11477

PATIENT
  Age: 33 Year
  Sex: Female
  Weight: 68 kg

DRUGS (2)
  1. AZZALURE [Suspect]
     Active Substance: BOTULINUM TOXIN TYPE A
     Dosage: NOT REPORTED
     Route: 065
     Dates: start: 2016, end: 2016
  2. AZZALURE [Suspect]
     Active Substance: BOTULINUM TOXIN TYPE A
     Indication: SKIN WRINKLING
     Dosage: NOT REPORTED
     Route: 065
     Dates: start: 20160601, end: 20160601

REACTIONS (11)
  - Pharyngeal oedema [Unknown]
  - Product substitution issue [Unknown]
  - Swelling face [Unknown]
  - Dermatitis allergic [Recovered/Resolved]
  - Ear swelling [Unknown]
  - Rash generalised [Unknown]
  - Ear swelling [Unknown]
  - Rash generalised [Unknown]
  - Swelling face [Recovered/Resolved]
  - Pharyngeal oedema [Unknown]
  - Dermatitis allergic [Unknown]

NARRATIVE: CASE EVENT DATE: 2016
